FAERS Safety Report 5954686-0 (Version None)
Quarter: 2008Q4

REPORT INFORMATION
  Report Type: 
  Country: None (occurrence: None)
  Receive Date: 20081117
  Receipt Date: 20081107
  Transmission Date: 20090506
  Serious: Yes (Other)
  Sender: FDA-Public Use
  Company Number: PHNU2008DE01923

PATIENT
  Sex: Female

DRUGS (3)
  1. ZOMETA [Suspect]
     Indication: METASTASES TO BONE
     Dosage: 4 MG, QMO
     Route: 042
     Dates: start: 20070101, end: 20080101
  2. EMESTAR PLUS [Concomitant]
     Dosage: 600/12.5
     Route: 048
     Dates: start: 20051101
  3. METOHEXAL [Concomitant]
     Dosage: 100 MG
     Route: 048
     Dates: start: 20041101

REACTIONS (1)
  - FAILURE OF IMPLANT [None]
